FAERS Safety Report 18209972 (Version 2)
Quarter: 2020Q4

REPORT INFORMATION
  Report Type: Report from Study
  Country: None (occurrence: US)
  Receive Date: 20200829
  Receipt Date: 20201008
  Transmission Date: 20210113
  Serious: Yes (Hospitalization, Other)
  Sender: FDA-Public Use
  Company Number: US-ABBVIE-20K-163-3545204-00

PATIENT
  Sex: Male

DRUGS (1)
  1. SKYRIZI [Suspect]
     Active Substance: RISANKIZUMAB-RZAA
     Indication: PSORIASIS
     Dosage: WEEK 4 THEN EVERY 12 WEEKS
     Route: 058
     Dates: start: 20200602

REACTIONS (2)
  - Cardiovascular disorder [Not Recovered/Not Resolved]
  - Post procedural cellulitis [Recovering/Resolving]

NARRATIVE: CASE EVENT DATE: 2020
